FAERS Safety Report 25163869 (Version 1)
Quarter: 2025Q2

REPORT INFORMATION
  Report Type: Spontaneous
  Country: ES (occurrence: ES)
  Receive Date: 20250405
  Receipt Date: 20250405
  Transmission Date: 20250717
  Serious: Yes (Hospitalization, Other)
  Sender: AUROBINDO
  Company Number: ES-AEMPS-1649869

PATIENT
  Age: 43 Year
  Sex: Male

DRUGS (3)
  1. CIPROFLOXACIN [Suspect]
     Active Substance: CIPROFLOXACIN
     Indication: Diverticulum
     Dosage: 500 MILLIGRAM, TWO TIMES A DAY
     Route: 048
     Dates: start: 20250218, end: 20250227
  2. METRONIDAZOLE [Suspect]
     Active Substance: METRONIDAZOLE
     Indication: Diverticulum
     Dosage: 500 MILLIGRAM, TWO TIMES A DAY (
     Route: 048
     Dates: start: 20250218
  3. TIGECYCLINE [Suspect]
     Active Substance: TIGECYCLINE
     Indication: Diverticulitis
     Dosage: 100 MILLIGRAM, TWO TIMES A DAY (100 MG EVERY 12 HOURS)
     Route: 042
     Dates: start: 20250218, end: 20250225

REACTIONS (1)
  - Clostridium difficile colitis [Recovering/Resolving]

NARRATIVE: CASE EVENT DATE: 20250313
